FAERS Safety Report 10338008 (Version 1)
Quarter: 2014Q3

REPORT INFORMATION
  Report Type: Spontaneous
  Country: US (occurrence: None)
  Receive Date: 20140723
  Receipt Date: 20140723
  Transmission Date: 20150326
  Serious: Yes (Death)
  Sender: FDA-Public Use
  Company Number: None

PATIENT
  Age: 71 Year
  Sex: Male

DRUGS (11)
  1. PREDNISONE. [Concomitant]
     Active Substance: PREDNISONE
  2. LETAIRIS [Suspect]
     Active Substance: AMBRISENTAN
     Indication: PULMONARY ARTERIAL HYPERTENSION
     Route: 048
     Dates: start: 2012
  3. LETAIRIS [Concomitant]
     Active Substance: AMBRISENTAN
  4. REMODULIN [Concomitant]
     Active Substance: TREPROSTINIL
  5. VIAGRA [Concomitant]
     Active Substance: SILDENAFIL CITRATE
  6. LASIX [Concomitant]
     Active Substance: FUROSEMIDE
  7. PROAIR HFA [Concomitant]
     Active Substance: ALBUTEROL SULFATE
  8. PERCOCET [Concomitant]
     Active Substance: ACETAMINOPHEN\OXYCODONE HYDROCHLORIDE
  9. QVAR [Concomitant]
     Active Substance: BECLOMETHASONE DIPROPIONATE
  10. ATROVENT [Concomitant]
     Active Substance: IPRATROPIUM BROMIDE
  11. PRILOSECT [Concomitant]

REACTIONS (5)
  - Cardiac failure [None]
  - Respiratory disorder [None]
  - Renal failure acute [None]
  - Dyspnoea [None]
  - Chronic obstructive pulmonary disease [None]

NARRATIVE: CASE EVENT DATE: 20140711
